FAERS Safety Report 16816396 (Version 3)
Quarter: 2019Q4

REPORT INFORMATION
  Report Type: Spontaneous
  Country: JP (occurrence: JP)
  Receive Date: 20190917
  Receipt Date: 20191226
  Transmission Date: 20200122
  Serious: Yes (Hospitalization, Other)
  Sender: FDA-Public Use
  Company Number: JP-GLAXOSMITHKLINE-JP2019JPN166323

PATIENT
  Age: 35 Year
  Sex: Female

DRUGS (10)
  1. LAMICTAL [Suspect]
     Active Substance: LAMOTRIGINE
     Dosage: 2450 MG, SINGLE
     Route: 048
     Dates: start: 20190911, end: 20190911
  2. LEXAPRO [Concomitant]
     Active Substance: ESCITALOPRAM OXALATE
     Dosage: 20 MG, 1D
     Route: 048
     Dates: end: 201909
  3. LAMICTAL [Suspect]
     Active Substance: LAMOTRIGINE
     Indication: EPILEPSY
     Dosage: 75 MG, 1D
     Route: 048
  4. CYMBALTA [Concomitant]
     Active Substance: DULOXETINE HYDROCHLORIDE
     Dosage: 40 MG, 1D
     Route: 048
     Dates: end: 201909
  5. BELSOMRA [Concomitant]
     Active Substance: SUVOREXANT
     Dosage: 15 MG, 1D
     Route: 048
     Dates: end: 201909
  6. MAGNESIUM OXIDE TABLET [Concomitant]
     Dosage: 660 MG, BID
     Route: 048
     Dates: end: 201909
  7. ALPRAZOLAM TABLETS [Concomitant]
     Active Substance: ALPRAZOLAM
     Dosage: 0.8 MG, TID
     Route: 048
     Dates: end: 201909
  8. REXULTI [Concomitant]
     Active Substance: BREXPIPRAZOLE
     Dosage: 1.5 MG, 1D
     Route: 048
     Dates: end: 201909
  9. QUETIAPINE. [Concomitant]
     Active Substance: QUETIAPINE
     Dosage: 25 MG, 1D
     Route: 048
     Dates: end: 201909
  10. LUNESTA TABLETS [Concomitant]
     Dosage: 2 MG, 1D
     Route: 048
     Dates: end: 201909

REACTIONS (3)
  - Intentional overdose [Unknown]
  - Suicide attempt [Unknown]
  - Depressed level of consciousness [Recovered/Resolved]

NARRATIVE: CASE EVENT DATE: 20190911
